FAERS Safety Report 4585633-4 (Version None)
Quarter: 2005Q1

REPORT INFORMATION
  Report Type: 
  Country: None (occurrence: None)
  Receive Date: 20050214
  Receipt Date: 20050201
  Transmission Date: 20050727
  Serious: Yes (Hospitalization)
  Sender: FDA-Public Use
  Company Number: 2005024345

PATIENT
  Age: 86 Year
  Sex: Female

DRUGS (7)
  1. CELEBRA (CELECOXIB) [Suspect]
     Indication: OSTEOARTHRITIS
     Dosage: 200 MG (DAILY), ORAL
     Route: 048
     Dates: end: 20041218
  2. ALBYL-ENTEROSOLUBILE (ACETYLSALICYLIC ACID, MAGNESIUM OXIDE) [Suspect]
     Indication: ANTICOAGULANT THERAPY
     Dosage: 75 MG (75 MG, 1 IN 1 D), ORAL
     Route: 048
     Dates: end: 20041218
  3. ZOLPIDEM TARTRATE [Concomitant]
  4. MOXONIDINE (MOXONIDINE) [Concomitant]
  5. METOPROLOL SUCCINATE [Concomitant]
  6. ISOPHANE INSULIN [Concomitant]
  7. VASERETIC [Concomitant]

REACTIONS (4)
  - DUODENAL ULCER HAEMORRHAGE [None]
  - NAUSEA [None]
  - VOMITING [None]
  - WEIGHT DECREASED [None]
